FAERS Safety Report 7028829-4 (Version None)
Quarter: 2010Q4

REPORT INFORMATION
  Report Type: 
  Country: None (occurrence: None)
  Receive Date: 20101004
  Receipt Date: 20101004
  Transmission Date: 20110411
  Serious: Yes (Death)
  Sender: FDA-Public Use
  Company Number: None

PATIENT
  Sex: Male

DRUGS (1)
  1. FLUORESCEIN SODIUM [Suspect]
     Indication: DIAGNOSTIC PROCEDURE

REACTIONS (4)
  - COMMUNICATION DISORDER [None]
  - GENERAL PHYSICAL HEALTH DETERIORATION [None]
  - MALAISE [None]
  - RETCHING [None]
